FAERS Safety Report 26130197 (Version 1)
Quarter: 2025Q4

REPORT INFORMATION
  Report Type: Report from Study
  Country: KR (occurrence: KR)
  Receive Date: 20251208
  Receipt Date: 20251208
  Transmission Date: 20260118
  Serious: Yes (Other)
  Sender: JOHNSON AND JOHNSON
  Company Number: KR-JNJFOC-20251200534

PATIENT

DRUGS (2)
  1. INFLIXIMAB [Suspect]
     Active Substance: INFLIXIMAB
     Indication: Product used for unknown indication
     Route: 041
  2. SIMPONI [Suspect]
     Active Substance: GOLIMUMAB
     Indication: Product used for unknown indication
     Route: 058

REACTIONS (6)
  - Multiple sclerosis [Unknown]
  - Guillain-Barre syndrome [Unknown]
  - Myelitis transverse [Unknown]
  - Bell^s palsy [Unknown]
  - Neuromyelitis optica spectrum disorder [Unknown]
  - Optic neuritis [Unknown]
